FAERS Safety Report 16430596 (Version 1)
Quarter: 2019Q2

REPORT INFORMATION
  Report Type: Spontaneous
  Country: PL (occurrence: PL)
  Receive Date: 20190614
  Receipt Date: 20190614
  Transmission Date: 20190711
  Serious: Yes (Hospitalization)
  Sender: FDA-Public Use
  Company Number: PL-ACCORD-132900

PATIENT
  Age: 51 Year
  Sex: Male
  Weight: 67 kg

DRUGS (2)
  1. DOCETAXEL. [Suspect]
     Active Substance: DOCETAXEL
     Indication: PROSTATE CANCER
     Dosage: END DATE 23-AUG-2016
     Route: 042
     Dates: start: 20160823
  2. DEXAMETHASONE PABI [Concomitant]
     Indication: PROSTATE CANCER
     Route: 048
     Dates: start: 20160822, end: 20160824

REACTIONS (2)
  - Gastrointestinal inflammation [Recovered/Resolved]
  - Tinea infection [Recovered/Resolved]

NARRATIVE: CASE EVENT DATE: 20160831
